FAERS Safety Report 22283674 (Version 2)
Quarter: 2023Q2

REPORT INFORMATION
  Report Type: Spontaneous
  Country: VN (occurrence: VN)
  Receive Date: 20230504
  Receipt Date: 20230509
  Transmission Date: 20230721
  Serious: No
  Sender: FDA-Public Use
  Company Number: VN-PFIZER INC-PV202300076157

PATIENT
  Age: 47 Year
  Sex: Female

DRUGS (2)
  1. IBRANCE [Suspect]
     Active Substance: PALBOCICLIB
     Dosage: UNK
  2. GOSERELIN [Concomitant]
     Active Substance: GOSERELIN

REACTIONS (3)
  - Neoplasm progression [Unknown]
  - Pleural effusion [Unknown]
  - Dyspnoea [Unknown]
